FAERS Safety Report 11840459 (Version 2)
Quarter: 2016Q1

REPORT INFORMATION
  Report Type: Spontaneous
  Country: US (occurrence: US)
  Receive Date: 20151216
  Receipt Date: 20160115
  Transmission Date: 20160525
  Serious: Yes (Death)
  Sender: FDA-Public Use
  Company Number: US-SA-2015SA212599

PATIENT
  Age: 60 Year
  Sex: Female

DRUGS (2)
  1. ALIROCUMAB PREFILLED PEN [Concomitant]
     Active Substance: ALIROCUMAB
     Dates: start: 20150918
  2. PRALUENT [Suspect]
     Active Substance: ALIROCUMAB
     Route: 065
     Dates: start: 20150918

REACTIONS (1)
  - Completed suicide [Fatal]

NARRATIVE: CASE EVENT DATE: 20151116
